FAERS Safety Report 9978749 (Version 1)
Quarter: 2014Q1

REPORT INFORMATION
  Report Type: Report from Study
  Country: US (occurrence: US)
  Receive Date: 20140306
  Receipt Date: 20140306
  Transmission Date: 20141002
  Serious: No
  Sender: FDA-Public Use
  Company Number: US-ABBVIE-13P-163-1169017-00

PATIENT
  Age: 54 Year
  Sex: Female

DRUGS (4)
  1. HUMIRA [Suspect]
     Indication: CROHN^S DISEASE
     Dosage: LOADING DOSE
     Dates: start: 20131109, end: 20131109
  2. HUMIRA [Suspect]
  3. NEXIUM [Concomitant]
     Indication: PRODUCT USED FOR UNKNOWN INDICATION
  4. NABUMETONE [Concomitant]
     Indication: PAIN

REACTIONS (5)
  - Gastrooesophageal reflux disease [Unknown]
  - Injection site pain [Recovering/Resolving]
  - Abdominal pain upper [Recovered/Resolved]
  - Chest pain [Unknown]
  - Dyspepsia [Recovered/Resolved]
